FAERS Safety Report 21311197 (Version 1)
Quarter: 2022Q3

REPORT INFORMATION
  Report Type: Spontaneous
  Country: US (occurrence: None)
  Receive Date: 20220909
  Receipt Date: 20220909
  Transmission Date: 20221027
  Serious: No
  Sender: FDA-Public Use
  Company Number: US-ARIS GLOBAL-202201-0161

PATIENT
  Sex: Female

DRUGS (12)
  1. OXERVATE [Suspect]
     Active Substance: CENEGERMIN-BKBJ
     Indication: Ulcerative keratitis
     Route: 047
     Dates: start: 20220117
  2. GENTAMICIN SULFATE [Concomitant]
     Active Substance: GENTAMICIN SULFATE
  3. FLUOROMETHOLONE [Concomitant]
     Active Substance: FLUOROMETHOLONE
  4. VITAMIN C [Concomitant]
     Active Substance: ASCORBIC ACID
  5. ATORVASTATIN CALCIUM [Concomitant]
     Active Substance: ATORVASTATIN CALCIUM
  6. ETODOLAC [Concomitant]
     Active Substance: ETODOLAC
  7. ERYTHROMYCIN [Concomitant]
     Active Substance: ERYTHROMYCIN
  8. BRIMONIDINE TARTRATE [Concomitant]
     Active Substance: BRIMONIDINE TARTRATE
  9. COSOPT [Concomitant]
     Active Substance: DORZOLAMIDE HYDROCHLORIDE\TIMOLOL MALEATE
     Dosage: 22.3-6.8/1
  10. MOXIFLOXACIN [Concomitant]
     Active Substance: MOXIFLOXACIN
  11. LATANOPROST [Concomitant]
     Active Substance: LATANOPROST
  12. METOPROLOL SUCCINATE [Concomitant]
     Active Substance: METOPROLOL SUCCINATE

REACTIONS (4)
  - Eye swelling [Unknown]
  - Swelling of eyelid [Unknown]
  - Eye pain [Unknown]
  - Ocular hyperaemia [Unknown]
